FAERS Safety Report 9294018 (Version 1)
Quarter: 2013Q1

REPORT INFORMATION
  Report Type: Spontaneous
  Country: US (occurrence: None)
  Receive Date: 20121226
  Receipt Date: 20121226
  Transmission Date: 20140127
  Serious: Yes (Hospitalization, Other)
  Sender: FDA-Public Use
  Company Number: 340826

PATIENT
  Age: 60 Year
  Sex: Male
  Weight: 73.5 kg

DRUGS (2)
  1. LEVEMIR [Suspect]
     Indication: TYPE 1 DIABETES MELLITUS
     Route: 058
     Dates: start: 201102, end: 20110703
  2. NOVOLOG [Suspect]
     Indication: TYPE 1 DIABETES MELLITUS
     Route: 058
     Dates: start: 201102, end: 20110603

REACTIONS (2)
  - Product quality issue [None]
  - Blood glucose increased [None]
